FAERS Safety Report 8866404 (Version 1)
Quarter: 2012Q4

REPORT INFORMATION
  Report Type: Report from Study
  Country: US (occurrence: US)
  Receive Date: 20121025
  Receipt Date: 20121025
  Transmission Date: 20130627
  Serious: Yes (Hospitalization)
  Sender: FDA-Public Use
  Company Number: US-ABBOTT-12P-163-0996883-00

PATIENT
  Age: 62 Year
  Sex: Female

DRUGS (11)
  1. HUMIRA [Suspect]
     Indication: CROHN^S DISEASE
     Dosage: loading dose
     Dates: start: 201207, end: 201207
  2. HUMIRA [Suspect]
  3. B-12 [Concomitant]
     Indication: PRODUCT USED FOR UNKNOWN INDICATION
  4. GABAPENTIN [Concomitant]
     Indication: TREMOR
  5. PAXIL [Concomitant]
     Indication: PRODUCT USED FOR UNKNOWN INDICATION
  6. KLONOPIN [Concomitant]
     Indication: PRODUCT USED FOR UNKNOWN INDICATION
     Dosage: twice daily
  7. OXYCODONE [Concomitant]
     Indication: PAIN
  8. FENTANYL [Concomitant]
     Indication: PAIN
     Dosage: patch; changed every 3 days
  9. UNKNOWN MEDICATION [Concomitant]
     Indication: GASTRIC DISORDER
  10. GENERIC FOR PHENERGAN [Concomitant]
     Indication: NAUSEA
  11. GENERIC FOR PHENERGAN [Concomitant]
     Indication: VOMITING

REACTIONS (12)
  - Anal fistula [Unknown]
  - Chronic obstructive pulmonary disease [Recovered/Resolved]
  - Lung infection [Unknown]
  - Sepsis [Unknown]
  - Vaginal infection [Unknown]
  - Urinary tract infection [Recovered/Resolved]
  - Sepsis [Recovered/Resolved]
  - Blister [Recovering/Resolving]
  - Skin lesion [Recovering/Resolving]
  - Diarrhoea [Recovering/Resolving]
  - Abdominal pain [Unknown]
  - Vulvovaginal human papilloma virus infection [Not Recovered/Not Resolved]
